FAERS Safety Report 11275150 (Version 1)
Quarter: 2015Q3

REPORT INFORMATION
  Report Type: Spontaneous
  Country: IT (occurrence: None)
  Receive Date: 20150714
  Receipt Date: 20150714
  Transmission Date: 20151125
  Serious: Yes (Hospitalization)
  Sender: FDA-Public Use
  Company Number: 2015FE02336

PATIENT
  Age: 17 Year
  Sex: Male

DRUGS (1)
  1. SOMATROPIN (SOMATROPIN) [Suspect]
     Active Substance: SOMATROPIN
     Indication: GROWTH HORMONE DEFICIENCY
     Route: 058
     Dates: start: 200802, end: 200901

REACTIONS (4)
  - Diarrhoea haemorrhagic [None]
  - Inflammatory bowel disease [None]
  - Anaemia [None]
  - Intestinal polyp [None]

NARRATIVE: CASE EVENT DATE: 200901
